FAERS Safety Report 7976982 (Version 24)
Quarter: 2014Q2

REPORT INFORMATION
  Report Type: Spontaneous
  Country: US (occurrence: US)
  Receive Date: 20110607
  Receipt Date: 20140401
  Transmission Date: 20141212
  Serious: Yes (Hospitalization, Other)
  Sender: FDA-Public Use
  Company Number: US-ASTRAZENECA-2011SE32214

PATIENT
  Age: 64 Year
  Sex: Female

DRUGS (74)
  1. NEXIUM [Suspect]
     Indication: GASTROOESOPHAGEAL REFLUX DISEASE
     Dosage: 40 MG DAILY AND SOMETIME TWICE A DAY AS NEEDED
     Route: 048
     Dates: start: 2001, end: 2011
  2. NEXIUM [Suspect]
     Indication: GASTROOESOPHAGEAL REFLUX DISEASE
     Dosage: 1-2 DAILY
     Route: 048
     Dates: start: 2002, end: 2011
  3. NEXIUM [Suspect]
     Indication: GASTROOESOPHAGEAL REFLUX DISEASE
     Route: 048
     Dates: start: 20021104
  4. NEXIUM [Suspect]
     Indication: GASTROOESOPHAGEAL REFLUX DISEASE
     Dosage: EVERY DAY
     Route: 048
     Dates: start: 2003
  5. NEXIUM [Suspect]
     Indication: GASTROOESOPHAGEAL REFLUX DISEASE
     Route: 048
     Dates: start: 20060818
  6. NEXIUM [Suspect]
     Indication: GASTROOESOPHAGEAL REFLUX DISEASE
     Route: 048
     Dates: start: 200802
  7. NEXIUM [Suspect]
     Indication: GASTROOESOPHAGEAL REFLUX DISEASE
     Route: 048
     Dates: start: 20100323
  8. NEXIUM [Suspect]
     Indication: GASTROOESOPHAGEAL REFLUX DISEASE
     Route: 048
     Dates: start: 20100412
  9. PRILOSEC OTC [Concomitant]
  10. PRILOSEC OTC [Concomitant]
     Dates: start: 20110330
  11. PEPTO-BISMOL [Concomitant]
     Dosage: USED PERIODICALLY IF NEEDED
  12. ROLAIDS [Concomitant]
     Dosage: USED PERIODICALLY IF NEEDED
     Dates: start: 1990
  13. TARKA [Concomitant]
     Indication: HYPERTENSION
  14. TARKA [Concomitant]
     Indication: HYPERTENSION
     Dosage: 4 MG TO 240 MG 1 TAB ONCE A DAY AT BEDTIME
     Dates: start: 200802
  15. TARKA [Concomitant]
     Indication: HYPERTENSION
     Dosage: 4 MG-240 MG ORAL TABLET EXTENDED RELEASE ONCE A DAY
     Route: 048
     Dates: start: 20100323
  16. TARKA [Concomitant]
     Indication: HYPERTENSION
     Dosage: 4 TO 240 CR ONE TABLET PER DAILY
     Dates: start: 20100412
  17. TARKA [Concomitant]
     Indication: HYPERTENSION
     Dosage: 4/240 MG 1 PILL QAM,STARTED AT AGE 50
     Dates: start: 201210
  18. AMITRIPTYLINE [Concomitant]
     Indication: MIGRAINE
     Dates: start: 200802
  19. AMITRIPTYLINE [Concomitant]
     Indication: MIGRAINE
     Route: 048
     Dates: start: 20100323
  20. AMITRIPTYLINE [Concomitant]
     Indication: MIGRAINE
     Dates: start: 20100412
  21. AMITRIPTYLINE [Concomitant]
     Indication: MIGRAINE
     Dates: start: 20120917
  22. AMITRIPTYLINE [Concomitant]
     Indication: MIGRAINE
     Dosage: STARTED AT AGE 48
     Dates: start: 201210
  23. LYRICAL/LYRICA [Concomitant]
     Indication: FIBROMYALGIA
     Route: 048
  24. LYRICAL/LYRICA [Concomitant]
     Indication: RADICULITIS LUMBOSACRAL
     Route: 048
  25. LYRICAL/LYRICA [Concomitant]
     Indication: FIBROMYALGIA
     Route: 048
  26. LYRICAL/LYRICA [Concomitant]
     Indication: RADICULITIS LUMBOSACRAL
     Route: 048
  27. LYRICAL/LYRICA [Concomitant]
     Indication: FIBROMYALGIA
     Dates: start: 20100803
  28. LYRICAL/LYRICA [Concomitant]
     Indication: RADICULITIS LUMBOSACRAL
     Dates: start: 20100803
  29. LYRICAL/LYRICA [Concomitant]
     Indication: FIBROMYALGIA
     Dates: start: 2010
  30. LYRICAL/LYRICA [Concomitant]
     Indication: RADICULITIS LUMBOSACRAL
     Dates: start: 2010
  31. CITRACAL D3 [Concomitant]
     Indication: OSTEOPOROSIS PROPHYLAXIS
     Dosage: DAILY
  32. IMITREX [Concomitant]
  33. MELOXICAM [Concomitant]
  34. CYCLOBENZAPRIN [Concomitant]
  35. TRAMADOL [Concomitant]
     Indication: PAIN
     Dosage: AS NEEDED
  36. CALTRATE/TUMS [Concomitant]
     Dates: start: 20021104
  37. CALTRATE/TUMS [Concomitant]
     Dosage: 600 D TWO TABLET DAILY
     Dates: start: 20100412
  38. CALTRATE/TUMS [Concomitant]
     Dosage: 600 WITH D 600MG-400 INTL UNITS TABLET 1 TAB BID
     Dates: start: 200802
  39. FEXOFENADINE [Concomitant]
     Dates: start: 20021104
  40. FEXOFENADINE [Concomitant]
     Dates: start: 200802
  41. BAYER ASPIRIN/ASA [Concomitant]
     Dates: start: 20021104
  42. BAYER ASPIRIN/ASA [Concomitant]
     Dates: start: 200802
  43. BAYER ASPIRIN/ASA [Concomitant]
     Route: 048
     Dates: start: 20100323
  44. FOSAMAX [Concomitant]
     Indication: FIBROMYALGIA
     Dates: start: 20110509
  45. ICAPS [Concomitant]
     Dosage: 1 TABLET DAILY
     Dates: start: 20100412
  46. TYLENOL [Concomitant]
     Indication: ARTHRITIS
     Route: 048
     Dates: start: 20100323
  47. TYLENOL [Concomitant]
     Indication: PAIN
     Route: 048
     Dates: start: 20100323
  48. TYLENOL [Concomitant]
     Indication: ARTHRITIS
     Dosage: AS NEEDED
     Dates: start: 20100412
  49. TYLENOL [Concomitant]
     Indication: PAIN
     Dosage: AS NEEDED
     Dates: start: 20100412
  50. TYLENOL [Concomitant]
     Indication: ARTHRITIS
     Dosage: QD
     Dates: start: 20120917
  51. TYLENOL [Concomitant]
     Indication: PAIN
     Dosage: QD
     Dates: start: 20120917
  52. ALLERTEC [Concomitant]
     Dosage: 1 TABLET DAILY
     Dates: start: 20100412
  53. ALLERTEC [Concomitant]
     Dosage: STARTED 1 MONTH AGO
     Dates: start: 201210
  54. VICODIN [Concomitant]
     Dosage: 1 TABLET DAILY
     Dates: start: 20100412
  55. PREMARIN [Concomitant]
     Dates: start: 200007
  56. PREMARIN [Concomitant]
     Dates: start: 200802
  57. PREMARIN [Concomitant]
  58. BENZONATATE [Concomitant]
     Dates: start: 200802
  59. ZEBUTAL [Concomitant]
     Dosage: 500 MG 50 MG 40 MG CAPSULE 2 CAPS Q6H
     Dates: start: 200802
  60. GABAPENTIN [Concomitant]
     Dates: start: 201008
  61. DEXILANT [Concomitant]
     Dates: start: 2011
  62. DEXILANT [Concomitant]
     Route: 048
     Dates: start: 20120627
  63. ZANTAC [Concomitant]
     Dates: start: 20120917
  64. BIOTIN [Concomitant]
     Dosage: STARTED TWO MONTHS AGO
     Dates: start: 201210
  65. BIOTIN [Concomitant]
     Dates: start: 20120917
  66. PHENERGAN [Concomitant]
     Dates: start: 20120524
  67. COVERA [Concomitant]
     Dosage: AT NIGHT
     Dates: start: 200007
  68. VITAMIN B-12 [Concomitant]
     Dosage: STARTED 2 MONTHS AGO
     Dates: start: 201210
  69. PROLIA [Concomitant]
     Indication: OSTEOPOROSIS PROPHYLAXIS
     Dosage: 2 INJ
     Dates: start: 2013
  70. PROGESTERONE [Concomitant]
     Dosage: 1 CAPSULE BY MOUTH TWICE A DAY
     Dates: start: 20130429
  71. LISINOPRIL HCTZ [Concomitant]
     Dosage: 1 CAPSULE BY MOUTH TWICE A DAY
     Dates: start: 20121229
  72. PROMETHAZINE [Concomitant]
     Dosage: TAKE 5 TO 10 ML BY MOUTH EVERY 6 HOURS
     Dates: start: 20121203
  73. ATORVASTATIN [Concomitant]
     Dosage: TAKE 1 TABLET BY MOUTH AT BEDTIME
  74. DIAZEPAM [Concomitant]
     Dates: start: 20120524

REACTIONS (26)
  - Bone density decreased [Unknown]
  - Osteoarthritis [Unknown]
  - Fibromyalgia [Unknown]
  - Foot fracture [Unknown]
  - Ankle fracture [Unknown]
  - Joint injury [Unknown]
  - Rib fracture [Unknown]
  - Intervertebral disc degeneration [Unknown]
  - Fall [Unknown]
  - Intervertebral disc protrusion [Unknown]
  - Cervical radiculopathy [Unknown]
  - Osteopenia [Unknown]
  - Fibula fracture [Unknown]
  - Osteoporosis [Unknown]
  - Multiple fractures [Unknown]
  - Bone loss [Unknown]
  - Vitamin D deficiency [Unknown]
  - Emotional distress [Unknown]
  - Spinal osteoarthritis [Unknown]
  - Neck pain [Unknown]
  - Torticollis [Unknown]
  - Radiculitis lumbosacral [Unknown]
  - Tooth fracture [Unknown]
  - Calcium deficiency [Unknown]
  - Arthritis [Unknown]
  - Depression [Unknown]
